FAERS Safety Report 7948178-7 (Version None)
Quarter: 2011Q4

REPORT INFORMATION
  Report Type: 
  Country: None (occurrence: None)
  Receive Date: 20111130
  Receipt Date: 20111125
  Transmission Date: 20120403
  Serious: No
  Sender: FDA-Public Use
  Company Number: US-TEVA-311043USA

PATIENT
  Sex: Female
  Weight: 72.64 kg

DRUGS (4)
  1. PLAN B ONE-STEP [Suspect]
     Indication: POST COITAL CONTRACEPTION
     Dosage: 1.5 MILLIGRAM;
     Route: 048
     Dates: start: 20111120, end: 20111120
  2. XANAX [Concomitant]
     Indication: ANXIETY
  3. NUVARING [Concomitant]
     Indication: CONTRACEPTION
  4. PAXIL [Concomitant]
     Indication: OBSESSIVE-COMPULSIVE DISORDER

REACTIONS (1)
  - MENSTRUATION IRREGULAR [None]
